FAERS Safety Report 10924899 (Version 1)
Quarter: 2015Q1

REPORT INFORMATION
  Report Type: Spontaneous
  Country: US (occurrence: None)
  Receive Date: 20150316
  Receipt Date: 20150316
  Transmission Date: 20150721
  Serious: Yes (Other)
  Sender: FDA-Public Use
  Company Number: None

PATIENT
  Age: 75 Year
  Sex: Male
  Weight: 68.04 kg

DRUGS (7)
  1. ATORVASTATIN [Concomitant]
     Active Substance: ATORVASTATIN
  2. ASPIRIN. [Concomitant]
     Active Substance: ASPIRIN
  3. ZIRGAN [Suspect]
     Active Substance: GANCICLOVIR
     Indication: HERPES ZOSTER
     Dosage: 1 DROP  5 TIMES A DAY 5 TIMES A DAY
     Route: 047
     Dates: start: 20140905, end: 20141023
  4. FENOFIBRATE. [Concomitant]
     Active Substance: FENOFIBRATE
  5. ISOSORBIDE [Concomitant]
     Active Substance: ISOSORBIDE
  6. CARVEDILOL. [Concomitant]
     Active Substance: CARVEDILOL
  7. AMLODIPINE [Concomitant]
     Active Substance: AMLODIPINE BESYLATE

REACTIONS (1)
  - Visual acuity reduced [None]

NARRATIVE: CASE EVENT DATE: 20140905
